FAERS Safety Report 8570589-X (Version None)
Quarter: 2012Q3

REPORT INFORMATION
  Report Type: 
  Country: None (occurrence: None)
  Receive Date: 20120804
  Receipt Date: 20120706
  Transmission Date: 20120928
  Serious: No
  Sender: FDA-Public Use
  Company Number: US-009507513-1207USA003315

PATIENT

DRUGS (7)
  1. PEGASYS [Suspect]
  2. AMLODIPINE [Concomitant]
     Dosage: 10 MG, UNK
  3. VITAMINS (UNSPECIFIED) [Concomitant]
  4. LEVEMIR [Concomitant]
  5. METOPROLOL TARTRATE [Concomitant]
     Dosage: 25 MG, ER
  6. VICTRELIS [Suspect]
     Dosage: 200 MG, TID, (EVERY 7-9 HOURS)
     Route: 048
  7. REBETOL [Suspect]
     Dosage: 200 MG, UNK

REACTIONS (1)
  - DIZZINESS [None]
